FAERS Safety Report 6302687-5 (Version None)
Quarter: 2009Q3

REPORT INFORMATION
  Report Type: 
  Country: None (occurrence: None)
  Receive Date: 20090810
  Receipt Date: 20090729
  Transmission Date: 20100115
  Serious: Yes (Other)
  Sender: FDA-Public Use
  Company Number: PHHY2009JP31773

PATIENT
  Sex: Female

DRUGS (8)
  1. AMN107 AMN+CAP [Suspect]
     Indication: CHRONIC MYELOID LEUKAEMIA
     Dosage: 800 MG/DAY
     Route: 048
     Dates: start: 20080225
  2. GLEEVEC [Concomitant]
     Indication: CHRONIC MYELOID LEUKAEMIA
     Dosage: UNK
     Route: 048
     Dates: start: 20071211, end: 20080623
  3. DASATINIB [Concomitant]
     Indication: CHRONIC MYELOID LEUKAEMIA
     Dosage: UNK
     Route: 048
     Dates: start: 20081220, end: 20090101
  4. ZOVIRAX [Concomitant]
     Dosage: 800 MG, UNK
     Route: 048
     Dates: start: 20090209
  5. TAKEPRON [Concomitant]
     Dosage: 15 MG, UNK
     Route: 048
     Dates: start: 20090209
  6. DIFLUCAN [Concomitant]
     Dosage: 200 MG, UNK
     Route: 048
     Dates: start: 20090209
  7. DOGMATYL [Concomitant]
     Dosage: 150 MG, UNK
     Route: 048
     Dates: start: 20090207
  8. MAXIPIME [Concomitant]
     Dosage: UNK
     Route: 041
     Dates: start: 20090210, end: 20090216

REACTIONS (2)
  - ELECTROCARDIOGRAM QT PROLONGED [None]
  - HEPATIC FUNCTION ABNORMAL [None]
